FAERS Safety Report 8027332-2 (Version None)
Quarter: 2012Q1

REPORT INFORMATION
  Report Type: 
  Country: None (occurrence: None)
  Receive Date: 20120106
  Receipt Date: 20111230
  Transmission Date: 20120608
  Serious: Yes (Hospitalization)
  Sender: FDA-Public Use
  Company Number: CA-BRISTOL-MYERS SQUIBB COMPANY-15908965

PATIENT
  Age: 72 Year
  Sex: Female

DRUGS (3)
  1. SENOKOT [Concomitant]
  2. SPRYCEL [Suspect]
     Indication: CHRONIC MYELOID LEUKAEMIA
     Dosage: RESTARTED:08JUL11(SAME DOSE 50MG ONCE DAILY)
     Route: 048
     Dates: start: 20110513, end: 20110917
  3. NORVASC [Concomitant]

REACTIONS (9)
  - SYNCOPE [None]
  - PERICARDIAL EFFUSION [None]
  - CHEST PAIN [None]
  - PLEURAL EFFUSION [None]
  - CARDIAC ARREST [None]
  - DYSPNOEA [None]
  - COMA [None]
  - HYPOTENSION [None]
  - RENAL FAILURE [None]
